FAERS Safety Report 6846843-6 (Version None)
Quarter: 2010Q3

REPORT INFORMATION
  Report Type: 
  Country: None (occurrence: None)
  Receive Date: 20100715
  Receipt Date: 20071221
  Transmission Date: 20110219
  Serious: No
  Sender: FDA-Public Use
  Company Number: US-PFIZER INC-2007080261

PATIENT
  Sex: Female

DRUGS (3)
  1. CHANTIX [Suspect]
     Indication: SMOKING CESSATION THERAPY
     Route: 048
     Dates: start: 20070101
  2. PLAVIX [Concomitant]
  3. ZOCOR [Concomitant]

REACTIONS (3)
  - DRUG DEPENDENCE [None]
  - FORMICATION [None]
  - INSOMNIA [None]
